FAERS Safety Report 5217985-6 (Version None)
Quarter: 2007Q1

REPORT INFORMATION
  Report Type: 
  Country: None (occurrence: None)
  Receive Date: 20061130
  Receipt Date: 20060807
  Transmission Date: 20070707
  Serious: Yes (Hospitalization)
  Sender: FDA-Public Use
  Company Number: US200607001197

PATIENT
  Sex: Male
  Weight: 55.8 kg

DRUGS (1)
  1. ZYPREXA [Suspect]
     Indication: DEPRESSION
     Dosage: 20 MG, EACH EVENING, AT BEDTIME, UNK

REACTIONS (1)
  - PANCREATITIS [None]
